FAERS Safety Report 8446175-9 (Version None)
Quarter: 2012Q2

REPORT INFORMATION
  Report Type: 
  Country: None (occurrence: None)
  Receive Date: 20120618
  Receipt Date: 20120608
  Transmission Date: 20120825
  Serious: No
  Sender: FDA-Public Use
  Company Number: US-ASTRAZENECA-2008UW25171

PATIENT
  Age: 42 Year
  Sex: Female
  Weight: 58.1 kg

DRUGS (2)
  1. FISH OIL [Concomitant]
  2. SEROQUEL [Suspect]
     Indication: POST-TRAUMATIC STRESS DISORDER
     Route: 048
     Dates: start: 20001101

REACTIONS (3)
  - OFF LABEL USE [None]
  - MALAISE [None]
  - BLOOD CHOLESTEROL INCREASED [None]
